FAERS Safety Report 20138760 (Version 1)
Quarter: 2021Q4

REPORT INFORMATION
  Report Type: Spontaneous
  Country: US (occurrence: US)
  Receive Date: 20211202
  Receipt Date: 20211202
  Transmission Date: 20220303
  Serious: Yes (Hospitalization, Other)
  Sender: FDA-Public Use
  Company Number: US-NOVARTISPH-NVSC2021US268253

PATIENT
  Age: 85 Year
  Sex: Male

DRUGS (1)
  1. PROMACTA [Suspect]
     Active Substance: ELTROMBOPAG OLAMINE
     Indication: Immune thrombocytopenia
     Dosage: 25 MG, QD
     Route: 048
     Dates: start: 20211020

REACTIONS (6)
  - Varicose vein ruptured [Unknown]
  - Haemorrhage [Unknown]
  - Facial bones fracture [Unknown]
  - Fall [Unknown]
  - Eye injury [Unknown]
  - Asthenia [Unknown]

NARRATIVE: CASE EVENT DATE: 20211114
